FAERS Safety Report 24649841 (Version 1)
Quarter: 2024Q4

REPORT INFORMATION
  Report Type: Spontaneous
  Country: US (occurrence: US)
  Receive Date: 20241121
  Receipt Date: 20241121
  Transmission Date: 20250114
  Serious: No
  Sender: ROCHE
  Company Number: US-ROCHE-10000138069

PATIENT

DRUGS (1)
  1. OCREVUS [Suspect]
     Active Substance: OCRELIZUMAB
     Indication: Product used for unknown indication
     Route: 065

REACTIONS (4)
  - Lymphoedema [Not Recovered/Not Resolved]
  - Alopecia [Unknown]
  - Liver injury [Unknown]
  - Autonomic nervous system imbalance [Unknown]
